FAERS Safety Report 8603619-7 (Version None)
Quarter: 2012Q3

REPORT INFORMATION
  Report Type: 
  Country: None (occurrence: None)
  Receive Date: 20120817
  Receipt Date: 20120813
  Transmission Date: 20120928
  Serious: Yes (Life-Threatening, Other)
  Sender: FDA-Public Use
  Company Number: US-ASTRAZENECA-2012SE57235

PATIENT
  Age: 68 Year
  Sex: Male

DRUGS (1)
  1. NEXIUM [Suspect]
     Route: 048

REACTIONS (6)
  - COUGH [None]
  - ROAD TRAFFIC ACCIDENT [None]
  - COMA [None]
  - APPARENT DEATH [None]
  - HERNIA [None]
  - HYPERCHLORHYDRIA [None]
